FAERS Safety Report 19477104 (Version 1)
Quarter: 2021Q2

REPORT INFORMATION
  Report Type: Spontaneous
  Country: US (occurrence: US)
  Receive Date: 20210629
  Receipt Date: 20210629
  Transmission Date: 20210717
  Serious: Yes (Hospitalization)
  Sender: FDA-Public Use
  Company Number: None

PATIENT
  Age: 46 Year
  Sex: Female

DRUGS (14)
  1. MIDODRINE [Concomitant]
     Active Substance: MIDODRINE
  2. PROCHLORPER [Concomitant]
  3. TRAMADOL HCL [Concomitant]
     Active Substance: TRAMADOL HYDROCHLORIDE
  4. AMLOD/BENAZP [Concomitant]
  5. DICYCLOMINE [Concomitant]
     Active Substance: DICYCLOMINE HYDROCHLORIDE
  6. FERROUS SULF [Concomitant]
     Active Substance: FERROUS SULFATE
  7. METRONIDAZOL [Concomitant]
     Active Substance: METRONIDAZOLE
  8. NITROFURATIN [Concomitant]
  9. OXYCODONE [Concomitant]
     Active Substance: OXYCODONE
  10. CAPECITABINE 500MG TAB [Suspect]
     Active Substance: CAPECITABINE
     Indication: RECTAL CANCER
     Dosage: OTHER ROUTE:PO?14D ON?7D OFF?
     Route: 048
     Dates: start: 20210123
  11. MAGNESIUM?OX [Concomitant]
  12. NEOMYCIN. [Concomitant]
     Active Substance: NEOMYCIN
  13. ONDANSETRON [Concomitant]
     Active Substance: ONDANSETRON
  14. HYDROCO/APAP [Concomitant]
     Active Substance: ACETAMINOPHEN\HYDROCODONE

REACTIONS (1)
  - Hospitalisation [None]

NARRATIVE: CASE EVENT DATE: 20210626
